FAERS Safety Report 14929391 (Version 1)
Quarter: 2018Q2

REPORT INFORMATION
  Report Type: Spontaneous
  Country: IT (occurrence: IT)
  Receive Date: 20180523
  Receipt Date: 20180523
  Transmission Date: 20180711
  Serious: Yes (Hospitalization)
  Sender: FDA-Public Use
  Company Number: IT-ABBVIE-18P-083-2364392-00

PATIENT
  Age: 75 Year
  Sex: Female

DRUGS (1)
  1. MAVIRET [Suspect]
     Active Substance: GLECAPREVIR\PIBRENTASVIR
     Indication: LIVER DISORDER
     Dosage: 100 MG/40 MG FILM-COATED TABLETS
     Route: 048
     Dates: start: 20180118, end: 20180412

REACTIONS (2)
  - Ischaemic stroke [Recovered/Resolved with Sequelae]
  - Thrombosis [Recovered/Resolved with Sequelae]

NARRATIVE: CASE EVENT DATE: 20180303
